FAERS Safety Report 6465915-1 (Version None)
Quarter: 2009Q4

REPORT INFORMATION
  Report Type: 
  Country: None (occurrence: None)
  Receive Date: 20091202
  Receipt Date: 20091124
  Transmission Date: 20100525
  Serious: Yes (Hospitalization)
  Sender: FDA-Public Use
  Company Number: US-BIOGENIDEC-2009BI038021

PATIENT
  Age: 58 Year
  Sex: Female
  Weight: 66 kg

DRUGS (20)
  1. TYSABRI [Suspect]
     Indication: MULTIPLE SCLEROSIS
     Route: 042
     Dates: start: 20090624, end: 20090917
  2. VAGIFEM [Concomitant]
  3. LIPITOR [Concomitant]
     Route: 048
  4. NEXIUM [Concomitant]
     Route: 048
  5. PROVIGIL [Concomitant]
     Route: 048
  6. AMITRIPTYLINE [Concomitant]
     Route: 048
  7. ASPIRIN [Concomitant]
  8. PHENERGAN HCL [Concomitant]
  9. LIDOCAINE [Concomitant]
  10. SYNTHROID [Concomitant]
     Route: 048
  11. MARINOL [Concomitant]
     Indication: IMPAIRED GASTRIC EMPTYING
     Route: 048
  12. ERYTHROMYCIN [Concomitant]
     Indication: IMPAIRED GASTRIC EMPTYING
  13. FISH OIL [Concomitant]
  14. PATANASE NASAL SPRAY [Concomitant]
  15. MECLIZINE [Concomitant]
  16. MIRALAX [Concomitant]
  17. CO-Q [Concomitant]
  18. SKELAXIN [Concomitant]
  19. ZANAFLEX [Concomitant]
  20. VALIUM [Concomitant]

REACTIONS (1)
  - PSYCHOTIC DISORDER [None]
